FAERS Safety Report 8524693-2 (Version None)
Quarter: 2012Q3

REPORT INFORMATION
  Report Type: 
  Country: None (occurrence: None)
  Receive Date: 20120720
  Receipt Date: 20120711
  Transmission Date: 20120928
  Serious: Yes (Death, Hospitalization, Other)
  Sender: FDA-Public Use
  Company Number: GB-ROCHE-1087318

PATIENT
  Age: 47 Year
  Sex: Female

DRUGS (1)
  1. ACTEMRA [Suspect]
     Indication: RHEUMATOID ARTHRITIS

REACTIONS (4)
  - PNEUMONITIS [None]
  - C-REACTIVE PROTEIN ABNORMAL [None]
  - NEUTROPHIL COUNT ABNORMAL [None]
  - PNEUMOCYSTIS JIROVECI PNEUMONIA [None]
